FAERS Safety Report 6211493-1 (Version None)
Quarter: 2009Q2

REPORT INFORMATION
  Report Type: 
  Country: None (occurrence: None)
  Receive Date: 20090528
  Receipt Date: 20090513
  Transmission Date: 20091009
  Serious: Yes (Hospitalization)
  Sender: FDA-Public Use
  Company Number: 2009AP001954

PATIENT
  Age: 59 Year
  Sex: Female

DRUGS (7)
  1. CITALOPRAM HYDROBROMIDE [Suspect]
     Dosage: 20 MG; PO
     Route: 048
  2. CALCIUM CARBONATE (CALCIUM CARBONATE) [Concomitant]
  3. COLECALCIFEROL (COLECALCIFEROL) [Concomitant]
  4. CHLORDIAZEPOXIDE [Concomitant]
  5. RISEDRONIC ACID (RISEDRONIC ACID) [Concomitant]
  6. TAMOXIFEN CITRATE [Concomitant]
  7. ETHANOL (ETHANOL) [Concomitant]

REACTIONS (4)
  - FALL [None]
  - GRAND MAL CONVULSION [None]
  - HIP FRACTURE [None]
  - HYPONATRAEMIA [None]
